FAERS Safety Report 5099330-2 (Version None)
Quarter: 2006Q3

REPORT INFORMATION
  Report Type: 
  Country: None (occurrence: None)
  Receive Date: 20060726
  Receipt Date: 20060427
  Transmission Date: 20061208
  Serious: No
  Sender: FDA-Public Use
  Company Number: 012197

PATIENT
  Age: 58 Year
  Sex: Male

DRUGS (3)
  1. PRIALT [Suspect]
     Indication: BACK PAIN
     Dosage: SEE IMAGE
     Route: 037
     Dates: start: 20060301, end: 20060306
  2. PRIALT [Suspect]
     Indication: BACK PAIN
     Dosage: SEE IMAGE
     Route: 037
     Dates: start: 20060306
  3. DIOVAN [Concomitant]

REACTIONS (3)
  - ERECTILE DYSFUNCTION [None]
  - PAIN IN EXTREMITY [None]
  - URINARY INCONTINENCE [None]
